FAERS Safety Report 5180770-8 (Version None)
Quarter: 2006Q4

REPORT INFORMATION
  Report Type: 
  Country: None (occurrence: None)
  Receive Date: 20061219
  Receipt Date: 20060902
  Transmission Date: 20070319
  Serious: No
  Sender: FDA-Public Use
  Company Number: US-AMGEN-KDL192304

PATIENT
  Sex: Male

DRUGS (2)
  1. ENBREL [Suspect]
     Indication: JUVENILE ARTHRITIS
     Route: 058
     Dates: start: 20060728
  2. METHOTREXATE [Concomitant]

REACTIONS (5)
  - CONDITION AGGRAVATED [None]
  - FEELING HOT [None]
  - FLUSHING [None]
  - HEADACHE [None]
  - INJECTION SITE REACTION [None]
